FAERS Safety Report 22536923 (Version 1)
Quarter: 2023Q2

REPORT INFORMATION
  Report Type: Spontaneous
  Country: US (occurrence: US)
  Receive Date: 20230608
  Receipt Date: 20230608
  Transmission Date: 20230722
  Serious: Yes (Hospitalization)
  Sender: FDA-Public Use
  Company Number: US-SK LIFE SCIENCE, INC.-SKPVG-2023-000602

PATIENT

DRUGS (3)
  1. XCOPRI [Suspect]
     Active Substance: CENOBAMATE
     Indication: Epilepsy
     Dosage: UNK
     Route: 065
  2. XCOPRI [Suspect]
     Active Substance: CENOBAMATE
     Dosage: 150 MILLIGRAM
     Route: 065
  3. XCOPRI [Suspect]
     Active Substance: CENOBAMATE
     Dosage: 200 MILLIGRAM
     Route: 065

REACTIONS (5)
  - Hospitalisation [Recovered/Resolved]
  - Seizure [Not Recovered/Not Resolved]
  - Product use issue [Not Recovered/Not Resolved]
  - Tremor [Unknown]
  - Somnolence [Unknown]

NARRATIVE: CASE EVENT DATE: 20230301
